FAERS Safety Report 5393373-7 (Version None)
Quarter: 2007Q3

REPORT INFORMATION
  Report Type: 
  Country: None (occurrence: None)
  Receive Date: 20070723
  Receipt Date: 20070719
  Transmission Date: 20080115
  Serious: Yes (Death)
  Sender: FDA-Public Use
  Company Number: PHEH2007US07943

PATIENT
  Age: 87 Year
  Sex: Male

DRUGS (1)
  1. EXJADE [Suspect]
     Indication: IRON OVERLOAD
     Dosage: 1750 MG, QD
     Route: 048
     Dates: start: 20060925

REACTIONS (1)
  - MYELODYSPLASTIC SYNDROME [None]
